FAERS Safety Report 8005992-X (Version None)
Quarter: 2011Q4

REPORT INFORMATION
  Report Type: 
  Country: None (occurrence: None)
  Receive Date: 20111226
  Receipt Date: 20111219
  Transmission Date: 20120403
  Serious: Yes (Other)
  Sender: FDA-Public Use
  Company Number: ES-BRISTOL-MYERS SQUIBB COMPANY-16300642

PATIENT
  Age: 72 Year
  Sex: Female

DRUGS (1)
  1. HYDREA [Suspect]
     Indication: THROMBOCYTOPENIA
     Route: 048
     Dates: start: 20111114, end: 20111120

REACTIONS (3)
  - EAR HAEMORRHAGE [None]
  - DYSPHONIA [None]
  - COUGH [None]
